FAERS Safety Report 8240811-8 (Version None)
Quarter: 2012Q1

REPORT INFORMATION
  Report Type: 
  Country: None (occurrence: None)
  Receive Date: 20120328
  Receipt Date: 20120314
  Transmission Date: 20120608
  Serious: Yes (Hospitalization, Other)
  Sender: FDA-Public Use
  Company Number: PHHY2012JP020433

PATIENT
  Age: 36 Year
  Sex: Male

DRUGS (5)
  1. METHOTREXATE [Concomitant]
     Indication: PROPHYLAXIS AGAINST GRAFT VERSUS HOST DISEASE
  2. PREDNISOLONE [Concomitant]
     Dosage: 40 MG, QD
     Dates: start: 20110302
  3. CYCLOSPORINE [Suspect]
     Indication: PROPHYLAXIS AGAINST GRAFT VERSUS HOST DISEASE
  4. CYCLOPHOSPHAMIDE [Concomitant]
     Indication: PROPHYLAXIS AGAINST GRAFT VERSUS HOST DISEASE
  5. PREDNISOLONE [Concomitant]
     Dosage: 20 MG, QD
     Dates: start: 20110225

REACTIONS (4)
  - EOSINOPHILIC PNEUMONIA ACUTE [None]
  - UPPER RESPIRATORY TRACT INFLAMMATION [None]
  - ACUTE GRAFT VERSUS HOST DISEASE [None]
  - LUNG INFILTRATION [None]
